FAERS Safety Report 6237206-5 (Version None)
Quarter: 2009Q2

REPORT INFORMATION
  Report Type: 
  Country: None (occurrence: None)
  Receive Date: 20090619
  Receipt Date: 20090610
  Transmission Date: 20091009
  Serious: Yes (Life-Threatening, Hospitalization)
  Sender: FDA-Public Use
  Company Number: US-WYE-H09722709

PATIENT
  Sex: Female

DRUGS (7)
  1. TORISEL [Suspect]
     Indication: RENAL CANCER
     Route: 042
     Dates: start: 20081114, end: 20090601
  2. FOLIC ACID [Concomitant]
  3. LISINOPRIL [Concomitant]
     Dosage: UNKNOWN
     Route: 048
     Dates: end: 20090421
  4. TRAMADOL HCL [Concomitant]
  5. LASIX [Concomitant]
  6. XOPENEX [Concomitant]
  7. CARVEDILOL [Concomitant]

REACTIONS (1)
  - CEREBRAL HAEMORRHAGE [None]
